FAERS Safety Report 13955525 (Version 1)
Quarter: 2017Q3

REPORT INFORMATION
  Report Type: Spontaneous
  Country: US (occurrence: US)
  Receive Date: 20170911
  Receipt Date: 20170911
  Transmission Date: 20171128
  Serious: Yes (Other)
  Sender: FDA-Public Use
  Company Number: US-BAYER-2017-165578

PATIENT
  Sex: Female

DRUGS (2)
  1. MIRALAX [Suspect]
     Active Substance: POLYETHYLENE GLYCOL 3350
     Indication: CONSTIPATION
     Dosage: UNK
     Route: 065
  2. ONE A DAY TRUNATAL REGULARITY SUPPORT [Suspect]
     Active Substance: INULIN
     Dosage: 2-3 GUMMIES
     Route: 048

REACTIONS (4)
  - Drug ineffective [Unknown]
  - Choking [Unknown]
  - Product use issue [Unknown]
  - Drug hypersensitivity [Unknown]
